FAERS Safety Report 6417879-4 (Version None)
Quarter: 2009Q4

REPORT INFORMATION
  Report Type: 
  Country: None (occurrence: None)
  Receive Date: 20091028
  Receipt Date: 20091022
  Transmission Date: 20100525
  Serious: Yes (Other)
  Sender: FDA-Public Use
  Company Number: A0813474A

PATIENT
  Sex: Male
  Weight: 28 kg

DRUGS (2)
  1. SERETIDE [Suspect]
     Indication: ASTHMA
     Dosage: 1PUFF PER DAY
     Route: 055
     Dates: start: 20090701
  2. AVAMYS [Concomitant]
     Dosage: 2PUFF PER DAY

REACTIONS (1)
  - ASTHMATIC CRISIS [None]
